FAERS Safety Report 9260458 (Version 1)
Quarter: 2013Q2

REPORT INFORMATION
  Report Type: Spontaneous
  Country: US (occurrence: US)
  Receive Date: 20130429
  Receipt Date: 20130429
  Transmission Date: 20140414
  Serious: No
  Sender: FDA-Public Use
  Company Number: US-PFIZER INC-2013133456

PATIENT
  Age: 42 Year
  Sex: Male
  Weight: 86.62 kg

DRUGS (3)
  1. LYRICA [Suspect]
     Indication: FIBROMYALGIA
     Dosage: 200 MG, 2X/DAY
     Dates: start: 2011, end: 20130423
  2. CYMBALTA [Concomitant]
     Dosage: 90 MG, 1X/DAY
  3. METFORMIN [Concomitant]
     Indication: DIABETES MELLITUS
     Dosage: 2000 MG, 1X/DAY

REACTIONS (1)
  - Pain [Not Recovered/Not Resolved]
